FAERS Safety Report 6569789-X (Version None)
Quarter: 2010Q1

REPORT INFORMATION
  Report Type: 
  Country: None (occurrence: None)
  Receive Date: 20100204
  Receipt Date: 20091218
  Transmission Date: 20100710
  Serious: No
  Sender: FDA-Public Use
  Company Number: US-TYCO HEALTHCARE/MALLINCKRODT-T200902354

PATIENT
  Age: 52 Year
  Sex: Female

DRUGS (10)
  1. OXYCODONE HCL EXTENDED-RELEASE [Suspect]
     Indication: PAIN
     Dosage: UNK
  2. LORAZEPAM [Concomitant]
  3. CYMBALTA [Concomitant]
  4. FIORICET [Concomitant]
  5. SKELAXIN [Concomitant]
     Indication: MUSCLE RELAXANT THERAPY
  6. MECLIZINE                          /00072801/ [Concomitant]
  7. COPAXONE                           /01410902/ [Concomitant]
     Indication: MULTIPLE SCLEROSIS
  8. ATENOLOL [Concomitant]
     Indication: HYPERTENSION
  9. FEXOFENADINE [Concomitant]
  10. VITAMIN D [Concomitant]
     Dosage: 800 MG, UNK

REACTIONS (2)
  - DRUG INTERACTION [None]
  - DRUG SCREEN NEGATIVE [None]
